FAERS Safety Report 5429550-6 (Version None)
Quarter: 2007Q3

REPORT INFORMATION
  Report Type: 
  Country: None (occurrence: None)
  Receive Date: 20070829
  Receipt Date: 20070823
  Transmission Date: 20080115
  Serious: Yes (Hospitalization)
  Sender: FDA-Public Use
  Company Number: BR-ASTRAZENECA-2007UW20386

PATIENT
  Age: 88 Year
  Sex: Male
  Weight: 61.6 kg

DRUGS (3)
  1. NEXIUM [Suspect]
     Indication: GASTRITIS
     Route: 048
     Dates: start: 20070601, end: 20070601
  2. PROLOPA [Concomitant]
     Indication: PARKINSON'S DISEASE
     Route: 048
  3. ALDACTONE [Concomitant]
     Dosage: 1/2 DOSAGE QD
     Route: 048

REACTIONS (6)
  - ANAEMIA [None]
  - DIZZINESS [None]
  - FAECES DISCOLOURED [None]
  - MULTIPLE MYELOMA [None]
  - SYNCOPE [None]
  - VOMITING [None]
